FAERS Safety Report 5256996-1 (Version None)
Quarter: 2007Q1

REPORT INFORMATION
  Report Type: 
  Country: None (occurrence: None)
  Receive Date: 20070307
  Receipt Date: 20060220
  Transmission Date: 20070707
  Serious: No
  Sender: FDA-Public Use
  Company Number: US-GLAXOSMITHKLINE-A0594077A

PATIENT
  Age: 22 Year

DRUGS (1)
  1. CONTAC 12 HOUR [Suspect]
     Indication: FEELING COLD

REACTIONS (2)
  - EYELID OEDEMA [None]
  - URTICARIA [None]
